FAERS Safety Report 21629426 (Version 1)
Quarter: 2022Q4

REPORT INFORMATION
  Report Type: Spontaneous
  Country: BE (occurrence: BE)
  Receive Date: 20221122
  Receipt Date: 20221122
  Transmission Date: 20230112
  Serious: Yes (Life-Threatening, Other)
  Sender: FDA-Public Use
  Company Number: None

PATIENT
  Age: 63 Year
  Sex: Female
  Weight: 70 kg

DRUGS (2)
  1. PENICILLIN G SODIUM [Suspect]
     Active Substance: PENICILLIN G SODIUM
     Indication: Gastrointestinal inflammation
     Dosage: UNK (OPNAME SPOED VOOR DARMONTSTEKING EN ER WERD PENICILLINE TOEGEDIEND EN GING IN SCHOK )
     Route: 042
  2. CODEINE [Suspect]
     Active Substance: CODEINE
     Indication: Back pain
     Dosage: UNK (INNAME VOOR ONTSTEKING RUG EN KREEG NIERPIJNNO)
     Route: 048

REACTIONS (2)
  - Shock [Recovered/Resolved]
  - Renal pain [Recovered/Resolved]
